FAERS Safety Report 12384456 (Version 1)
Quarter: 2016Q2

REPORT INFORMATION
  Report Type: Spontaneous
  Country: US (occurrence: None)
  Receive Date: 20160518
  Receipt Date: 20160518
  Transmission Date: 20160815
  Serious: No
  Sender: FDA-Public Use
  Company Number: None

PATIENT
  Age: 63 Year
  Sex: Male

DRUGS (6)
  1. PREDNISONE. [Concomitant]
     Active Substance: PREDNISONE
  2. TRAMADOL HCL [Concomitant]
     Active Substance: TRAMADOL HYDROCHLORIDE
  3. XELJANZ [Suspect]
     Active Substance: TOFACITINIB CITRATE
     Indication: RHEUMATOID ARTHRITIS
     Dosage: 5MG TAB 1 TAB TWICE DAIL BY MOUTH
     Route: 048
     Dates: start: 20150206, end: 20160517
  4. FORTEO [Concomitant]
     Active Substance: TERIPARATIDE
  5. METHOTREXATE [Concomitant]
     Active Substance: METHOTREXATE
  6. ALEDRONATE [Concomitant]

REACTIONS (1)
  - Blood test abnormal [None]
